FAERS Safety Report 8957441 (Version 1)
Quarter: 2012Q4

REPORT INFORMATION
  Report Type: 
  Country: CN (occurrence: CN)
  Receive Date: 20121210
  Receipt Date: 20121210
  Transmission Date: 20130627
  Serious: No
  Sender: FDA-Public Use
  Company Number: CN-ROCHE-1154449

PATIENT
  Age: 42 Year
  Sex: Female
  Weight: 58 kg

DRUGS (1)
  1. TARCEVA [Suspect]
     Indication: LUNG ADENOCARCINOMA
     Route: 048
     Dates: start: 20120714

REACTIONS (6)
  - Dry skin [Not Recovered/Not Resolved]
  - Rash [Recovering/Resolving]
  - Dehydration [Not Recovered/Not Resolved]
  - Paronychia [Not Recovered/Not Resolved]
  - Hair growth abnormal [Not Recovered/Not Resolved]
  - Skin exfoliation [Recovering/Resolving]
